FAERS Safety Report 6720919-6 (Version None)
Quarter: 2010Q2

REPORT INFORMATION
  Report Type: 
  Country: None (occurrence: None)
  Receive Date: 20100512
  Receipt Date: 20100504
  Transmission Date: 20101027
  Serious: Yes (Hospitalization)
  Sender: FDA-Public Use
  Company Number: IT-JNJFOC-20100405817

PATIENT
  Sex: Male

DRUGS (10)
  1. LEVOFLOXACIN [Suspect]
     Indication: URINARY TRACT INFECTION
     Route: 048
  2. DELTACORTENE [Concomitant]
     Route: 065
  3. LASIX [Concomitant]
     Indication: HYPERTENSION
     Route: 065
  4. ZYLORIC [Concomitant]
     Route: 065
  5. CACIT NOS [Concomitant]
     Route: 065
  6. ASPIRIN [Concomitant]
     Route: 065
  7. NITRO-DUR [Concomitant]
     Route: 065
  8. OMEPRAZOLE [Concomitant]
     Route: 065
  9. CORDARONE [Concomitant]
     Route: 065
  10. LEVOTHYROXINE SODIUM [Concomitant]
     Route: 065

REACTIONS (4)
  - DEHYDRATION [None]
  - DIARRHOEA [None]
  - NAUSEA [None]
  - VOMITING [None]
